FAERS Safety Report 8573291-3 (Version None)
Quarter: 2012Q2

REPORT INFORMATION
  Report Type: 
  Country: None (occurrence: None)
  Receive Date: 20120423
  Receipt Date: 20090619
  Transmission Date: 20120825
  Serious: Yes (Other)
  Sender: FDA-Public Use
  Company Number: PHEH2009US06454

PATIENT
  Sex: Male

DRUGS (1)
  1. EXJADE [Suspect]
     Indication: SICKLE CELL ANAEMIA
     Dosage: 1000 MG/DAY
     Dates: start: 20090601, end: 20090608

REACTIONS (3)
  - EYE PAIN [None]
  - BLINDNESS [None]
  - RETINAL VASCULAR OCCLUSION [None]
